FAERS Safety Report 9175502 (Version 1)
Quarter: 2013Q1

REPORT INFORMATION
  Report Type: Report from Study
  Country: AU (occurrence: AU)
  Receive Date: 20130320
  Receipt Date: 20130320
  Transmission Date: 20140127
  Serious: Yes (Other)
  Sender: FDA-Public Use
  Company Number: AU-ROCHE-1203015

PATIENT
  Age: 52 Year
  Sex: Female

DRUGS (8)
  1. ROFERON-A [Suspect]
     Indication: HEPATITIS C
     Route: 058
     Dates: start: 20120917
  2. RIBAVIRIN [Suspect]
     Indication: HEPATITIS C
     Route: 048
     Dates: start: 20120917
  3. TELAPREVIR [Suspect]
     Indication: HEPATITIS C
     Route: 048
     Dates: start: 20120917, end: 20121207
  4. PROMETHAZINE [Concomitant]
     Indication: RASH
     Route: 048
     Dates: start: 20121101
  5. NAPHCON-A [Concomitant]
     Indication: EYE ALLERGY
     Route: 065
     Dates: start: 20121001
  6. ADVANTAN OINTMENT [Concomitant]
     Indication: RASH
     Route: 061
     Dates: start: 20121201
  7. CHLORSIG [Concomitant]
     Indication: EYE INFECTION
     Route: 051
     Dates: start: 20130122
  8. ALOE VERA GEL [Concomitant]
     Indication: RASH
     Route: 061
     Dates: start: 20121001, end: 20121225

REACTIONS (1)
  - Retinopathy [Recovering/Resolving]
